FAERS Safety Report 20758593 (Version 6)
Quarter: 2022Q4

REPORT INFORMATION
  Report Type: Spontaneous
  Country: FI (occurrence: FI)
  Receive Date: 20220427
  Receipt Date: 20221213
  Transmission Date: 20230113
  Serious: Yes (Hospitalization, Other)
  Sender: FDA-Public Use
  Company Number: FI-INDIVIOR LIMITED-INDV-088268-2016

PATIENT
  Age: 3 Decade
  Sex: Male

DRUGS (4)
  1. PREGABALIN [Interacting]
     Active Substance: PREGABALIN
     Indication: Product used for unknown indication
     Dosage: UNK
     Route: 065
  2. SUBUTEX [Suspect]
     Active Substance: BUPRENORPHINE HYDROCHLORIDE
     Indication: Product used for unknown indication
     Dosage: UNK
     Route: 045
  3. BUPRENORPHINE [Interacting]
     Active Substance: BUPRENORPHINE
     Indication: Product used for unknown indication
     Dosage: UNK
     Route: 045
  4. BUPRENORPHINE [Suspect]
     Active Substance: BUPRENORPHINE
     Indication: Product used for unknown indication
     Dosage: UNK
     Route: 042

REACTIONS (11)
  - Rhabdomyolysis [Unknown]
  - Toxicity to various agents [Unknown]
  - Compartment syndrome [Unknown]
  - Quadriparesis [Unknown]
  - Myelopathy [Unknown]
  - Loss of consciousness [Recovered/Resolved]
  - Substance abuse [Unknown]
  - Drug abuse [Unknown]
  - Somnolence [Unknown]
  - Drug interaction [Unknown]
  - Intentional product use issue [Unknown]
